FAERS Safety Report 11721094 (Version 2)
Quarter: 2015Q4

REPORT INFORMATION
  Report Type: Spontaneous
  Country: US (occurrence: US)
  Receive Date: 20151110
  Receipt Date: 20151204
  Transmission Date: 20160304
  Serious: Yes (Hospitalization)
  Sender: FDA-Public Use
  Company Number: US-ACTELION-A-US2015-126861

PATIENT
  Age: 61 Year
  Sex: Female

DRUGS (4)
  1. WARFARIN [Concomitant]
     Active Substance: WARFARIN
  2. OPSUMIT [Suspect]
     Active Substance: MACITENTAN
     Indication: PULMONARY ARTERIAL HYPERTENSION
     Dosage: 10 MG, UNK
     Route: 048
  3. SILDENAFIL. [Concomitant]
     Active Substance: SILDENAFIL
  4. TREPROSTINIL DIOLAMIN [Concomitant]
     Active Substance: TREPROSTINIL DIOLAMINE
     Route: 048

REACTIONS (8)
  - Asthenia [Unknown]
  - Atrial fibrillation [Unknown]
  - Mobility decreased [Unknown]
  - Diarrhoea [Unknown]
  - Abdominal cavity drainage [Unknown]
  - Disorientation [Unknown]
  - Ascites [Unknown]
  - Cerebrovascular accident [Unknown]
